FAERS Safety Report 18635492 (Version 2)
Quarter: 2021Q1

REPORT INFORMATION
  Report Type: Spontaneous
  Country: US (occurrence: US)
  Receive Date: 20201218
  Receipt Date: 20210319
  Transmission Date: 20210419
  Serious: No
  Sender: FDA-Public Use
  Company Number: US-THERAPEUTICSMD-2020TMD04059

PATIENT
  Age: 61 Year
  Sex: Female
  Weight: 76.19 kg

DRUGS (4)
  1. UNSPECIFIED MEDICATION FOR CHOLESTEROL [Concomitant]
  2. IMVEXXY [Suspect]
     Active Substance: ESTRADIOL
     Indication: VULVOVAGINAL DRYNESS
     Dosage: 10 ?G, 1X/DAY BEFORE BED
     Route: 067
     Dates: start: 202009, end: 2020
  3. UNSPECIFIED MEDICATION FOR STOMACH (REFLUX) [Concomitant]
  4. IMVEXXY [Suspect]
     Active Substance: ESTRADIOL
     Dosage: 10 ?G, 2X/WEEK BEFORE BED
     Route: 067
     Dates: start: 2020, end: 202010

REACTIONS (6)
  - Skin irritation [Recovered/Resolved]
  - Vulvovaginal pain [Recovered/Resolved]
  - Skin burning sensation [Recovered/Resolved]
  - Product residue present [Recovered/Resolved]
  - Off label use [Recovered/Resolved]
  - Product administration error [Recovered/Resolved]

NARRATIVE: CASE EVENT DATE: 202009
